FAERS Safety Report 9120779 (Version 4)
Quarter: 2013Q2

REPORT INFORMATION
  Report Type: Report from Study
  Country: US (occurrence: US)
  Receive Date: 20130226
  Receipt Date: 20130403
  Transmission Date: 20140414
  Serious: Yes (Hospitalization)
  Sender: FDA-Public Use
  Company Number: US-JNJFOC-20130211901

PATIENT
  Age: 16 Year
  Sex: Male
  Weight: 55.5 kg

DRUGS (3)
  1. REMICADE [Suspect]
     Indication: CROHN^S DISEASE
     Route: 048
     Dates: start: 20071010
  2. HUMIRA [Concomitant]
     Dates: start: 20081017
  3. ANTIBIOTICS FOR IBD [Concomitant]

REACTIONS (1)
  - Perirectal abscess [Recovered/Resolved]
